FAERS Safety Report 6706340-5 (Version None)
Quarter: 2010Q2

REPORT INFORMATION
  Report Type: 
  Country: None (occurrence: None)
  Receive Date: 20100503
  Receipt Date: 20100419
  Transmission Date: 20101027
  Serious: Yes (Other)
  Sender: FDA-Public Use
  Company Number: PHHY2010ZA24548

PATIENT
  Sex: Female

DRUGS (3)
  1. DIOVAN HCT [Suspect]
     Indication: HYPERTENSION
     Dosage: 160 MG, UNK
  2. EXFORGE [Concomitant]
     Dosage: USED ONCE
     Dates: start: 20091201
  3. AMLOC [Concomitant]
     Dosage: 5 MG

REACTIONS (4)
  - BLOOD PRESSURE INADEQUATELY CONTROLLED [None]
  - BLOOD PRESSURE INCREASED [None]
  - SURGERY [None]
  - TREATMENT NONCOMPLIANCE [None]
